FAERS Safety Report 23683458 (Version 1)
Quarter: 2024Q1

REPORT INFORMATION
  Report Type: Spontaneous
  Country: US (occurrence: None)
  Receive Date: 20240328
  Receipt Date: 20240328
  Transmission Date: 20240410
  Serious: Yes (Hospitalization)
  Sender: FDA-Public Use
  Company Number: US-ROCHE-3531344

PATIENT

DRUGS (1)
  1. AVASTIN [Suspect]
     Active Substance: BEVACIZUMAB
     Indication: Macular oedema
     Route: 050
     Dates: start: 20240220

REACTIONS (8)
  - Burning sensation [Unknown]
  - Hypertensive encephalopathy [Unknown]
  - Arthralgia [Unknown]
  - Cerebrovascular accident [Unknown]
  - Chest pain [Unknown]
  - Mental status changes [Unknown]
  - Blood pressure increased [Unknown]
  - Off label use [Unknown]
